FAERS Safety Report 10055242 (Version 1)
Quarter: 2014Q2

REPORT INFORMATION
  Report Type: Spontaneous
  Country: SI (occurrence: SI)
  Receive Date: 20140403
  Receipt Date: 20140403
  Transmission Date: 20141212
  Serious: Yes (Hospitalization)
  Sender: FDA-Public Use
  Company Number: PHHY2014SI037129

PATIENT
  Age: 86 Year
  Sex: Female

DRUGS (5)
  1. SULFAMETHOXAZOLE+TRIMETHOPRIM [Suspect]
     Indication: URINARY TRACT INFECTION
     Dosage: 1 DF, Q12H
  2. SULFAMETHOXAZOLE+TRIMETHOPRIM [Suspect]
     Indication: ESCHERICHIA INFECTION
  3. ESCITALOPRAM [Concomitant]
     Indication: MAJOR DEPRESSION
  4. QUETIAPINE [Concomitant]
     Indication: MAJOR DEPRESSION
  5. RISPERIDONE [Concomitant]

REACTIONS (5)
  - Insomnia [Recovered/Resolved]
  - Fear [Recovered/Resolved]
  - Abnormal behaviour [Recovered/Resolved]
  - Disorientation [Recovered/Resolved]
  - Hallucinations, mixed [Recovered/Resolved]
